FAERS Safety Report 8804946 (Version 1)
Quarter: 2012Q4

REPORT INFORMATION
  Report Type: Report from Study
  Country: FR (occurrence: FR)
  Receive Date: 20120924
  Receipt Date: 20120924
  Transmission Date: 20130627
  Serious: Yes (Hospitalization)
  Sender: FDA-Public Use
  Company Number: FR-ROCHE-1123672

PATIENT
  Age: 70 Year
  Sex: Female
  Weight: 61 kg

DRUGS (1)
  1. ROACTEMRA [Suspect]
     Indication: PRODUCT USED FOR UNKNOWN INDICATION
     Dosage: Last Roactemra infusion administered on 22-Jun-2011
     Route: 042
     Dates: start: 20110523

REACTIONS (2)
  - Cholangitis acute [Recovered/Resolved]
  - Cholecystitis [Unknown]
